FAERS Safety Report 5075060-8 (Version None)
Quarter: 2006Q3

REPORT INFORMATION
  Report Type: 
  Country: None (occurrence: None)
  Receive Date: 20060807
  Receipt Date: 20060807
  Transmission Date: 20061208
  Serious: Yes (Life-Threatening)
  Sender: FDA-Public Use
  Company Number: None

PATIENT
  Age: 59 Year
  Sex: Male
  Weight: 78 kg

DRUGS (1)
  1. WINRHO SDF [Suspect]
     Indication: IDIOPATHIC THROMBOCYTOPENIC PURPURA
     Dosage: 19, 500 UNITS ONCE IV BOLUS
     Route: 040
     Dates: start: 20060803, end: 20060803

REACTIONS (4)
  - CHILLS [None]
  - HEART RATE INCREASED [None]
  - LABORATORY TEST ABNORMAL [None]
  - TREMOR [None]
